FAERS Safety Report 6372541-1 (Version None)
Quarter: 2009Q3

REPORT INFORMATION
  Report Type: 
  Country: None (occurrence: None)
  Receive Date: 20090924
  Receipt Date: 20081125
  Transmission Date: 20100115
  Serious: Yes (Other)
  Sender: FDA-Public Use
  Company Number: US-ASTRAZENECA-2008UW20176

PATIENT
  Age: 66 Year
  Sex: Female
  Weight: 99.8 kg

DRUGS (5)
  1. SEROQUEL [Suspect]
     Indication: BIPOLAR DISORDER
     Route: 048
  2. ABILIFY [Suspect]
  3. IMMAPRINE [Suspect]
  4. LASIX [Concomitant]
  5. METAMORPHIN [Concomitant]

REACTIONS (2)
  - JOINT STIFFNESS [None]
  - TARDIVE DYSKINESIA [None]
